FAERS Safety Report 12193625 (Version 3)
Quarter: 2016Q2

REPORT INFORMATION
  Report Type: Spontaneous
  Country: US (occurrence: US)
  Receive Date: 20160320
  Receipt Date: 20160422
  Transmission Date: 20160815
  Serious: Yes (Other)
  Sender: FDA-Public Use
  Company Number: US-ROCHE-1729029

PATIENT
  Age: 78 Year
  Sex: Male
  Weight: 78 kg

DRUGS (7)
  1. ATENOLOL. [Concomitant]
     Active Substance: ATENOLOL
     Indication: ATRIAL FIBRILLATION
     Route: 048
  2. ESBRIET [Suspect]
     Active Substance: PIRFENIDONE
     Indication: IDIOPATHIC PULMONARY FIBROSIS
     Dosage: 801 MG
     Route: 048
     Dates: start: 20151118
  3. LISINOPRIL. [Concomitant]
     Active Substance: LISINOPRIL
     Indication: CARDIAC FAILURE CONGESTIVE
     Route: 048
  4. WARFARIN [Concomitant]
     Active Substance: WARFARIN
     Indication: ATRIAL FIBRILLATION
     Route: 048
  5. ESBRIET [Suspect]
     Active Substance: PIRFENIDONE
     Dosage: 801 MG
     Route: 048
     Dates: start: 20160101, end: 20160314
  6. RANITIDINE. [Concomitant]
     Active Substance: RANITIDINE
     Indication: IDIOPATHIC PULMONARY FIBROSIS
     Route: 048
  7. LOVASTATIN. [Concomitant]
     Active Substance: LOVASTATIN
     Indication: HYPERLIPIDAEMIA
     Route: 048

REACTIONS (3)
  - Swelling [Unknown]
  - Rash [Recovered/Resolved]
  - Blister [Unknown]

NARRATIVE: CASE EVENT DATE: 20160311
